FAERS Safety Report 7585522-7 (Version None)
Quarter: 2011Q2

REPORT INFORMATION
  Report Type: 
  Country: None (occurrence: None)
  Receive Date: 20110628
  Receipt Date: 20110628
  Transmission Date: 20111010
  Serious: Yes (Life-Threatening)
  Sender: FDA-Public Use
  Company Number: None

PATIENT
  Sex: Female
  Weight: 53.0709 kg

DRUGS (1)
  1. ABILIFY [Suspect]
     Dosage: NOT CERTAIN OFTEN NEED TO EXPLAIN

REACTIONS (5)
  - LIVER DISORDER [None]
  - BODY TEMPERATURE INCREASED [None]
  - COGNITIVE DISORDER [None]
  - OVERDOSE [None]
  - DRUG WITHDRAWAL SYNDROME [None]
